FAERS Safety Report 10163414 (Version 1)
Quarter: 2014Q2

REPORT INFORMATION
  Report Type: Spontaneous
  Country: RO (occurrence: RO)
  Receive Date: 20140509
  Receipt Date: 20140509
  Transmission Date: 20141212
  Serious: Yes (Death, Hospitalization)
  Sender: FDA-Public Use
  Company Number: PHHY2014RO054626

PATIENT
  Age: 50 Year
  Sex: Male

DRUGS (7)
  1. VINCRISTINE [Suspect]
     Indication: DIFFUSE LARGE B-CELL LYMPHOMA
     Dosage: 2 MG, UNK
  2. DEXAMETHASONE [Suspect]
     Indication: DIFFUSE LARGE B-CELL LYMPHOMA
     Dosage: 16 MG, UNK
  3. MESNA [Suspect]
     Indication: DIFFUSE LARGE B-CELL LYMPHOMA
     Dosage: 3 DF, UNK
  4. ADRIBLASTINE [Suspect]
     Indication: DIFFUSE LARGE B-CELL LYMPHOMA
     Dosage: 90 MG, UNK
  5. CYCLOPHOSPHAMIDE [Suspect]
     Indication: DIFFUSE LARGE B-CELL LYMPHOMA
     Dosage: 1200 MG, UNK
  6. MABTHERA [Suspect]
     Indication: DIFFUSE LARGE B-CELL LYMPHOMA
  7. RADIOTHERAPY [Concomitant]
     Indication: DIFFUSE LARGE B-CELL LYMPHOMA
     Dosage: 5000 CGY

REACTIONS (2)
  - Cardiac arrest [Fatal]
  - Bone marrow failure [Unknown]
